FAERS Safety Report 20132071 (Version 1)
Quarter: 2021Q4

REPORT INFORMATION
  Report Type: Spontaneous
  Country: None (occurrence: GB)
  Receive Date: 20211130
  Receipt Date: 20211130
  Transmission Date: 20220303
  Serious: No
  Sender: FDA-Public Use
  Company Number: GB-Marksans Pharma Limited-2122497

PATIENT
  Sex: Female

DRUGS (1)
  1. FLUOXETINE HYDROCHLORIDE [Suspect]
     Active Substance: FLUOXETINE HYDROCHLORIDE
     Route: 048

REACTIONS (6)
  - Throat irritation [None]
  - Dyspepsia [None]
  - Nausea [None]
  - Headache [None]
  - Dizziness [None]
  - Asthenia [None]
